FAERS Safety Report 24812705 (Version 2)
Quarter: 2025Q1

REPORT INFORMATION
  Report Type: Report from Study
  Country: US (occurrence: US)
  Receive Date: 20250107
  Receipt Date: 20250115
  Transmission Date: 20250409
  Serious: Yes (Other)
  Sender: UCB
  Company Number: US-UCBSA-2024067619

PATIENT
  Sex: Female
  Weight: 116.7 kg

DRUGS (3)
  1. FINTEPLA [Suspect]
     Active Substance: FENFLURAMINE
     Indication: Lennox-Gastaut syndrome
     Dosage: 6 MILLILITER, 2X/DAY (BID)
     Route: 048
     Dates: start: 20230506
  2. FINTEPLA [Suspect]
     Active Substance: FENFLURAMINE
  3. FINTEPLA [Suspect]
     Active Substance: FENFLURAMINE
     Dosage: 6 MILLILITER, 2X/DAY (BID)
     Route: 048

REACTIONS (4)
  - Pulmonary arterial pressure increased [Not Recovered/Not Resolved]
  - Drug withdrawal convulsions [Recovered/Resolved]
  - Right atrial dilatation [Unknown]
  - Left ventricular hypertrophy [Unknown]

NARRATIVE: CASE EVENT DATE: 20240101
